FAERS Safety Report 19276381 (Version 1)
Quarter: 2021Q2

REPORT INFORMATION
  Report Type: Spontaneous
  Country: FR (occurrence: FR)
  Receive Date: 20210520
  Receipt Date: 20210520
  Transmission Date: 20210717
  Serious: Yes (Death)
  Sender: FDA-Public Use
  Company Number: FR-ACCORD-225487

PATIENT
  Age: 25 Year
  Sex: Female

DRUGS (12)
  1. HYDROXYZINE [Suspect]
     Active Substance: HYDROXYZINE HYDROCHLORIDE
     Dosage: UNSPECIFIED
     Route: 065
     Dates: end: 2021
  2. DIAMORPHINE [Suspect]
     Active Substance: DIAMORPHINE
     Dosage: UNSPECIFIED
     Route: 065
     Dates: end: 2021
  3. ECGONINE [Suspect]
     Active Substance: ECGONINE
     Dosage: UNSPECIFIED
     Route: 065
     Dates: end: 2021
  4. LORMETAZEPAM [Suspect]
     Active Substance: LORMETAZEPAM
     Dosage: UNSPECIFIED
     Route: 065
     Dates: end: 2021
  5. ALIMEMAZINE/ALIMEMAZINE TARTRATE [Suspect]
     Active Substance: TRIMEPRAZINE
     Dosage: UNSPECIFIED
     Route: 065
     Dates: end: 2021
  6. COCAINE [Suspect]
     Active Substance: COCAINE
     Dosage: UNSPECIFIED
     Route: 065
     Dates: end: 2021
  7. ARIPIPRAZOLE. [Suspect]
     Active Substance: ARIPIPRAZOLE
     Dosage: UNSPECIFIED
     Route: 065
     Dates: end: 2021
  8. NORDAZEPAM [Suspect]
     Active Substance: NORDAZEPAM
     Route: 065
     Dates: end: 2021
  9. DIAZEPAM. [Suspect]
     Active Substance: DIAZEPAM
     Dosage: UNSPECIFIED
     Route: 065
     Dates: end: 2021
  10. CANNABIS SATIVA [Suspect]
     Active Substance: CANNABIS SATIVA FLOWERING TOP
     Dosage: UNSPECIFIED
     Route: 065
     Dates: end: 2021
  11. CODEINE [Suspect]
     Active Substance: CODEINE
     Dosage: UNSPECIFIED
     Route: 065
     Dates: end: 2021
  12. MORPHINE [Suspect]
     Active Substance: MORPHINE
     Dosage: UNSPECIFIED
     Route: 065
     Dates: end: 2021

REACTIONS (2)
  - Drug abuse [Fatal]
  - Asphyxia [Fatal]

NARRATIVE: CASE EVENT DATE: 2021
